FAERS Safety Report 24867030 (Version 3)
Quarter: 2025Q1

REPORT INFORMATION
  Report Type: Spontaneous
  Country: BR (occurrence: BR)
  Receive Date: 20250121
  Receipt Date: 20250214
  Transmission Date: 20250408
  Serious: Yes (Hospitalization, Other)
  Sender: PFIZER
  Company Number: BR-PFIZER INC-PV202500008218

PATIENT
  Age: 47 Year
  Sex: Male

DRUGS (1)
  1. TALIGLUCERASE ALFA [Suspect]
     Active Substance: TALIGLUCERASE ALFA
     Indication: Gaucher^s disease
     Route: 042
     Dates: start: 20210219

REACTIONS (2)
  - Arthralgia [Recovering/Resolving]
  - Tibia fracture [Unknown]
